FAERS Safety Report 13935586 (Version 1)
Quarter: 2017Q3

REPORT INFORMATION
  Report Type: Spontaneous
  Country: JP (occurrence: JP)
  Receive Date: 20170905
  Receipt Date: 20170905
  Transmission Date: 20171127
  Serious: Yes (Other)
  Sender: FDA-Public Use
  Company Number: PHJP2017JP026873

PATIENT
  Age: 29 Year
  Sex: Male
  Weight: 69.2 kg

DRUGS (7)
  1. SAMSCA [Suspect]
     Active Substance: TOLVAPTAN
     Dosage: 60 MG, BID
     Route: 048
     Dates: start: 20140626, end: 20141029
  2. SAMSCA [Suspect]
     Active Substance: TOLVAPTAN
     Dosage: 45 MG, QD
     Route: 048
     Dates: start: 20140617, end: 20140625
  3. SAMSCA [Suspect]
     Active Substance: TOLVAPTAN
     Dosage: 45 MG, QD
     Route: 048
     Dates: start: 20141030
  4. BENIDIPINE HYDROCHLORIDE [Concomitant]
     Active Substance: BENIDIPINE HYDROCHLORIDE
     Indication: PRODUCT USED FOR UNKNOWN INDICATION
     Dosage: 30 MG, UNK
     Route: 048
     Dates: start: 20141029, end: 20141105
  5. DIOVAN [Suspect]
     Active Substance: VALSARTAN
     Indication: PRODUCT USED FOR UNKNOWN INDICATION
     Dosage: 80 MG, QD
     Route: 048
     Dates: start: 20120804, end: 20150602
  6. SAMSCA [Suspect]
     Active Substance: TOLVAPTAN
     Indication: CONGENITAL CYSTIC KIDNEY DISEASE
     Dosage: 15 MG, BID
     Route: 048
     Dates: start: 20140602, end: 20160616
  7. CALONAL [Concomitant]
     Active Substance: ACETAMINOPHEN
     Indication: PRODUCT USED FOR UNKNOWN INDICATION
     Dosage: 200 MG, UNK
     Route: 048
     Dates: start: 20120804

REACTIONS (10)
  - Hypernatraemia [Recovered/Resolved]
  - Haemorrhagic cyst [Recovered/Resolved]
  - Hypernatraemia [Recovered/Resolved]
  - Hyperuricaemia [Recovered/Resolved]
  - Nasopharyngitis [Recovered/Resolved]
  - Hypernatraemia [Recovered/Resolved]
  - Nasopharyngitis [Recovered/Resolved]
  - Hepatic function abnormal [Recovered/Resolved]
  - Thirst [Recovered/Resolved]
  - Pharyngitis [Recovered/Resolved]

NARRATIVE: CASE EVENT DATE: 20140618
